FAERS Safety Report 4942704-8 (Version None)
Quarter: 2006Q1

REPORT INFORMATION
  Report Type: 
  Country: None (occurrence: None)
  Receive Date: 20060314
  Receipt Date: 20060303
  Transmission Date: 20060701
  Serious: Yes (Hospitalization)
  Sender: FDA-Public Use
  Company Number: DE-BOEHRINGER INGELHEIM PHARMACEUTICALS, INC.-2006-DE-01210GD

PATIENT
  Age: 33 Year
  Sex: Male

DRUGS (4)
  1. VIRAMUNE [Suspect]
     Indication: HIV INFECTION
  2. STAVUDINE [Suspect]
     Indication: HIV INFECTION
     Dates: start: 19990301, end: 20010201
  3. DIDANOSINE [Suspect]
     Indication: HIV INFECTION
     Dates: start: 19990301, end: 20010201
  4. METHAMPHETAMINE HYDROCHLORIDE [Suspect]
     Dates: start: 20010201, end: 20010201

REACTIONS (14)
  - ABDOMINAL PAIN [None]
  - HEPATIC ENCEPHALOPATHY [None]
  - HEPATIC FAILURE [None]
  - HEPATIC STEATOSIS [None]
  - HEPATOMEGALY [None]
  - JAUNDICE [None]
  - LACTIC ACIDOSIS [None]
  - NAUSEA [None]
  - PANCREATITIS ACUTE [None]
  - PERITONEAL EFFUSION [None]
  - PLEURAL EFFUSION [None]
  - SPLENOMEGALY [None]
  - TACHYPNOEA [None]
  - VOMITING [None]
